FAERS Safety Report 4306147-2 (Version None)
Quarter: 2004Q1

REPORT INFORMATION
  Report Type: 
  Country: None (occurrence: None)
  Receive Date: 20040225
  Receipt Date: 20040211
  Transmission Date: 20041129
  Serious: Yes (Hospitalization)
  Sender: FDA-Public Use
  Company Number: USA040259127

PATIENT
  Age: 6 Year
  Sex: Male
  Weight: 22 kg

DRUGS (2)
  1. STRATTERA [Suspect]
     Dosage: 25 MG DAY
     Dates: start: 20040128
  2. ZOLOFT [Concomitant]

REACTIONS (9)
  - ABNORMAL BEHAVIOUR [None]
  - DEPRESSED MOOD [None]
  - FEAR [None]
  - INSOMNIA [None]
  - LOWER LIMB FRACTURE [None]
  - MENTAL DISORDER [None]
  - OPEN FRACTURE [None]
  - ROAD TRAFFIC ACCIDENT [None]
  - SELF INJURIOUS BEHAVIOUR [None]
